FAERS Safety Report 25034537 (Version 1)
Quarter: 2025Q1

REPORT INFORMATION
  Report Type: Spontaneous
  Country: RU (occurrence: RU)
  Receive Date: 20250304
  Receipt Date: 20250304
  Transmission Date: 20250408
  Serious: Yes (Other)
  Sender: ROCHE
  Company Number: RU-ROCHE-10000216569

PATIENT
  Sex: Female

DRUGS (9)
  1. ALECTINIB [Suspect]
     Active Substance: ALECTINIB
     Indication: Lung neoplasm malignant
     Route: 048
     Dates: start: 20210907, end: 20210920
  2. ALECTINIB [Suspect]
     Active Substance: ALECTINIB
     Route: 048
     Dates: start: 20211008, end: 20211207
  3. ALECTINIB [Suspect]
     Active Substance: ALECTINIB
     Route: 048
     Dates: start: 20230616, end: 20230914
  4. ALECTINIB [Suspect]
     Active Substance: ALECTINIB
     Route: 048
     Dates: start: 20231226, end: 20240124
  5. ALECTINIB [Suspect]
     Active Substance: ALECTINIB
     Route: 048
     Dates: start: 20240125, end: 20240223
  6. ALECTINIB [Suspect]
     Active Substance: ALECTINIB
     Route: 048
     Dates: start: 20240226, end: 20240326
  7. ALECTINIB [Suspect]
     Active Substance: ALECTINIB
     Route: 048
     Dates: start: 20240401, end: 20240430
  8. ALECTINIB [Suspect]
     Active Substance: ALECTINIB
     Route: 048
     Dates: start: 20240501, end: 20240530
  9. ALECTINIB [Suspect]
     Active Substance: ALECTINIB
     Route: 048
     Dates: start: 20240531, end: 20240629

REACTIONS (16)
  - Condition aggravated [Unknown]
  - Respiratory tract infection viral [Unknown]
  - Disease progression [Unknown]
  - Hepatic steatosis [Unknown]
  - Cholecystitis chronic [Unknown]
  - Pancreatic steatosis [Unknown]
  - Spinal osteoarthritis [Unknown]
  - Nephroptosis [Unknown]
  - Pelvic fluid collection [Unknown]
  - Resorption bone increased [Unknown]
  - Paranasal cyst [Unknown]
  - Demyelination [Unknown]
  - Pleural fibrosis [Unknown]
  - Pulmonary fibrosis [Unknown]
  - Pericarditis [Unknown]
  - Neoplasm [Unknown]
